FAERS Safety Report 9068623 (Version 2)
Quarter: 2013Q3

REPORT INFORMATION
  Report Type: Spontaneous
  Country: US (occurrence: ES)
  Receive Date: 20130206
  Receipt Date: 20130712
  Transmission Date: 20140515
  Serious: Yes (Other)
  Sender: FDA-Public Use
  Company Number: ES-009507513-0303ESP00009

PATIENT
  Age: 7 Year
  Sex: Male

DRUGS (1)
  1. SINGULAIR [Suspect]
     Indication: ASTHMA
     Dosage: 4 MG, QD
     Route: 048
     Dates: start: 20020207, end: 20020210

REACTIONS (5)
  - Abdominal pain [Recovered/Resolved]
  - Hyperkinesia [Recovered/Resolved]
  - Nervousness [Recovered/Resolved]
  - Oliguria [Recovered/Resolved]
  - Nightmare [Recovered/Resolved]
